FAERS Safety Report 17903846 (Version 1)
Quarter: 2020Q2

REPORT INFORMATION
  Report Type: Spontaneous
  Country: DE (occurrence: DE)
  Receive Date: 20200617
  Receipt Date: 20200617
  Transmission Date: 20200714
  Serious: Yes (Death, Life-Threatening, Hospitalization, Other)
  Sender: FDA-Public Use
  Company Number: DE-009507513-2006DEU004983

PATIENT
  Age: 72 Year
  Sex: Female

DRUGS (1)
  1. PEMBROLIZUMAB. [Suspect]
     Active Substance: PEMBROLIZUMAB
     Indication: MALIGNANT MELANOMA

REACTIONS (7)
  - Hepatitis fulminant [Fatal]
  - Hypertension [Fatal]
  - Somnolence [Fatal]
  - Autoimmune hepatitis [Fatal]
  - Hyperthyroidism [Fatal]
  - Thyrotoxic crisis [Fatal]
  - Tachycardia [Fatal]
